FAERS Safety Report 13370421 (Version 1)
Quarter: 2017Q1

REPORT INFORMATION
  Report Type: Spontaneous
  Country: US (occurrence: US)
  Receive Date: 20170324
  Receipt Date: 20170324
  Transmission Date: 20170429
  Serious: No
  Sender: FDA-Public Use
  Company Number: US-ROCHE-1501424

PATIENT
  Age: 42 Year
  Sex: Female

DRUGS (2)
  1. CLARITIN-D 12 HOUR [Concomitant]
     Active Substance: LORATADINE\PSEUDOEPHEDRINE SULFATE
  2. XOLAIR [Suspect]
     Active Substance: OMALIZUMAB
     Indication: ASTHMA
     Route: 058
     Dates: end: 20141127

REACTIONS (8)
  - Weight decreased [Unknown]
  - Wheezing [Recovering/Resolving]
  - Tremor [Unknown]
  - Hot flush [Unknown]
  - Flushing [Unknown]
  - Disorientation [Unknown]
  - Dizziness [Recovering/Resolving]
  - Dyspnoea [Recovering/Resolving]

NARRATIVE: CASE EVENT DATE: 20141127
